FAERS Safety Report 25887865 (Version 1)
Quarter: 2025Q4

REPORT INFORMATION
  Report Type: Spontaneous
  Country: CN (occurrence: CN)
  Receive Date: 20251007
  Receipt Date: 20251007
  Transmission Date: 20260119
  Serious: Yes (Other)
  Sender: BAXTER
  Company Number: None

PATIENT
  Age: 47 Year
  Sex: Male
  Weight: 65 kg

DRUGS (10)
  1. CYCLOPHOSPHAMIDE [Suspect]
     Active Substance: CYCLOPHOSPHAMIDE
     Indication: Plasma cell myeloma
     Dosage: 0.2 G, QD+ NS 250ML+ MESNA 0.4G
     Route: 041
     Dates: start: 20250601, end: 20250605
  2. SODIUM CHLORIDE [Suspect]
     Active Substance: SODIUM CHLORIDE
     Dosage: 250 ML, QD+ CYCLOPHOSPHAMIDE INJECTION 0.2G+ MESNA 0.4G
     Route: 041
     Dates: start: 20250601, end: 20250605
  3. SODIUM CHLORIDE [Suspect]
     Active Substance: SODIUM CHLORIDE
     Dosage: 500 ML, EVERY 2 DY+ CLADRIBINE 10MG
     Route: 041
     Dates: start: 20250601, end: 20250604
  4. SODIUM CHLORIDE [Suspect]
     Active Substance: SODIUM CHLORIDE
     Dosage: 250 ML, EVERY 2 DY+ MITOXANTRONE INJECTION 5MG
     Route: 041
     Dates: start: 20250601, end: 20250605
  5. SODIUM CHLORIDE [Suspect]
     Active Substance: SODIUM CHLORIDE
     Dosage: 250 ML+ CYTARABINE 500MG
     Route: 041
     Dates: start: 20250601, end: 20250605
  6. CLADRIBINE [Suspect]
     Active Substance: CLADRIBINE
     Indication: Plasma cell myeloma
     Dosage: 10 MG, EVERY 2 DY+ NS 500ML
     Route: 041
     Dates: start: 20250601, end: 20250604
  7. MITOXANTRONE HYDROCHLORIDE [Suspect]
     Active Substance: MITOXANTRONE HYDROCHLORIDE
     Indication: Plasma cell myeloma
     Dosage: 5 MG, EVERY 2 DY+ NS 250ML
     Route: 041
     Dates: start: 20250601, end: 20250605
  8. CYTARABINE [Suspect]
     Active Substance: CYTARABINE
     Indication: Plasma cell myeloma
     Dosage: 500 MG, QD+ NS 250ML
     Route: 041
     Dates: start: 20250601, end: 20250605
  9. MESNA [Suspect]
     Active Substance: MESNA
     Indication: Cystitis haemorrhagic
     Dosage: 0.4 G, QD+ NS 250ML+ CYCLOPHOSPHAMIDE INJECTION 0.2G
     Route: 041
     Dates: start: 20250601, end: 20250605
  10. MESNA [Suspect]
     Active Substance: MESNA
     Indication: Prophylaxis

REACTIONS (5)
  - Myelosuppression [Recovering/Resolving]
  - Full blood count decreased [Recovering/Resolving]
  - Granulocyte count decreased [Recovering/Resolving]
  - Palpitations [Recovering/Resolving]
  - Pyrexia [Recovering/Resolving]

NARRATIVE: CASE EVENT DATE: 20250605
